FAERS Safety Report 8132756-9 (Version None)
Quarter: 2012Q1

REPORT INFORMATION
  Report Type: 
  Country: None (occurrence: None)
  Receive Date: 20120213
  Receipt Date: 20120202
  Transmission Date: 20120608
  Serious: Yes (Other)
  Sender: FDA-Public Use
  Company Number: US-JNJFOC-20120204553

PATIENT
  Age: 45 Year
  Sex: Female
  Weight: 96 kg

DRUGS (11)
  1. ALL OTHER THERAPEUTIC DRUG [Suspect]
     Indication: SLEEP DISORDER
     Route: 065
  2. CYMBALTA [Concomitant]
     Indication: MYALGIA
  3. DIVALPROEX SODIUM [Concomitant]
     Indication: BIPOLAR DISORDER
  4. IBUPROFEN [Suspect]
     Route: 048
  5. IBUPROFEN [Suspect]
     Indication: FIBROMYALGIA
     Route: 048
  6. ACETAMINOPHEN [Suspect]
     Route: 065
  7. LYRICA [Suspect]
     Route: 065
     Dates: end: 20111201
  8. NAPROXEN (ALEVE) [Suspect]
     Indication: FIBROMYALGIA
     Route: 065
  9. LYRICA [Suspect]
     Indication: FIBROMYALGIA
     Dosage: STARTED 3-4 YEARS AGO
     Route: 065
  10. ACETAMINOPHEN [Suspect]
     Indication: FIBROMYALGIA
     Route: 065
  11. CYMBALTA [Concomitant]
     Indication: DEPRESSION

REACTIONS (6)
  - SUICIDE ATTEMPT [None]
  - INSOMNIA [None]
  - WEIGHT INCREASED [None]
  - FIBROMYALGIA [None]
  - INCREASED APPETITE [None]
  - DRUG INEFFECTIVE [None]
